FAERS Safety Report 12921136 (Version 2)
Quarter: 2016Q4

REPORT INFORMATION
  Report Type: Spontaneous
  Country: US (occurrence: US)
  Receive Date: 20161107
  Receipt Date: 20161205
  Transmission Date: 20170207
  Serious: Yes (Hospitalization, Other)
  Sender: FDA-Public Use
  Company Number: US-INDIVIOR LIMITED-INDV-096210-2016

PATIENT
  Age: 53 Year
  Sex: Male

DRUGS (3)
  1. BUPRENORPHINE/NALOXONE [Suspect]
     Active Substance: BUPRENORPHINE\NALOXONE
     Dosage: SELF-TAPERED TO 6 MG, DAILY
     Route: 060
     Dates: start: 2010
  2. BUPRENORPHINE/NALOXONE [Suspect]
     Active Substance: BUPRENORPHINE\NALOXONE
     Indication: PAIN MANAGEMENT
     Dosage: 24 MG PER DAY IN THREE DIVIDED DOSES
     Route: 060
  3. BUPRENORPHINE/NALOXONE [Suspect]
     Active Substance: BUPRENORPHINE\NALOXONE
     Dosage: 8MG THREE TO FOUR TIMES DAILY
     Route: 060
     Dates: start: 201002

REACTIONS (5)
  - Off label use [Recovered/Resolved]
  - Osteoarthritis [Unknown]
  - Intentional underdose [Recovered/Resolved]
  - Therapeutic response unexpected [Recovered/Resolved]
  - Product use issue [Recovered/Resolved]

NARRATIVE: CASE EVENT DATE: 2010
